FAERS Safety Report 9515553 (Version 2)
Quarter: 2013Q4

REPORT INFORMATION
  Report Type: Report from Study
  Country: BR (occurrence: BR)
  Receive Date: 20130911
  Receipt Date: 20131014
  Transmission Date: 20140711
  Serious: Yes (Death, Other)
  Sender: FDA-Public Use
  Company Number: PHHY2013BR099726

PATIENT
  Sex: Male

DRUGS (6)
  1. GALVUS [Suspect]
  2. RASILEZ [Suspect]
     Dosage: 2 DF (150 MG), DAILY
     Route: 048
     Dates: end: 20130811
  3. MONOCORDIL [Concomitant]
  4. DESONOL [Concomitant]
  5. ISCOVER [Concomitant]
  6. METRI [Concomitant]

REACTIONS (3)
  - Cerebrovascular accident [Fatal]
  - Senile dementia [Fatal]
  - Diabetes mellitus [Unknown]
